FAERS Safety Report 14588589 (Version 1)
Quarter: 2018Q1

REPORT INFORMATION
  Report Type: Spontaneous
  Country: US (occurrence: US)
  Receive Date: 20180301
  Receipt Date: 20180301
  Transmission Date: 20180509
  Serious: Yes (Hospitalization, Other)
  Sender: FDA-Public Use
  Company Number: US-GLAXOSMITHKLINE-US2018034434

PATIENT
  Age: 55 Year
  Sex: Male

DRUGS (5)
  1. ALBUTEROL NEBULIZER [Concomitant]
     Active Substance: ALBUTEROL
  2. VENTOLIN HFA [Concomitant]
     Active Substance: ALBUTEROL SULFATE
     Dosage: UNK
  3. ADVAIR DISKUS [Suspect]
     Active Substance: FLUTICASONE PROPIONATE\SALMETEROL XINAFOATE
     Indication: PRODUCT USED FOR UNKNOWN INDICATION
     Dosage: UNK
     Route: 055
     Dates: end: 201801
  4. ANORO ELLIPTA [Suspect]
     Active Substance: UMECLIDINIUM BROMIDE\VILANTEROL TRIFENATATE
     Indication: DYSPNOEA
     Dosage: 1 PUFF(S), QD
     Route: 055
     Dates: start: 201801, end: 20180226
  5. ANORO ELLIPTA [Suspect]
     Active Substance: UMECLIDINIUM BROMIDE\VILANTEROL TRIFENATATE
     Dosage: UNK
     Route: 055
     Dates: start: 20180227

REACTIONS (18)
  - Lower respiratory tract infection [Unknown]
  - Pyrexia [Unknown]
  - Respiratory distress [Recovering/Resolving]
  - Dyspnoea [Unknown]
  - Nausea [Unknown]
  - Eye pruritus [Unknown]
  - Palpitations [Unknown]
  - Retinopexy [Recovering/Resolving]
  - Eye irritation [Unknown]
  - Vision blurred [Unknown]
  - Eye swelling [Unknown]
  - Dry eye [Unknown]
  - Diarrhoea [Unknown]
  - Lacrimation increased [Unknown]
  - Upper respiratory tract infection [Unknown]
  - Drug ineffective [Unknown]
  - Rhinorrhoea [Unknown]
  - Ill-defined disorder [Unknown]

NARRATIVE: CASE EVENT DATE: 201705
